FAERS Safety Report 16701176 (Version 1)
Quarter: 2019Q3

REPORT INFORMATION
  Report Type: Spontaneous
  Country: FR (occurrence: FR)
  Receive Date: 20190814
  Receipt Date: 20190814
  Transmission Date: 20191004
  Serious: Yes (Other)
  Sender: FDA-Public Use
  Company Number: FR-AUROBINDO-AUR-APL-2019-053898

PATIENT

DRUGS (6)
  1. BACTRIM [Suspect]
     Active Substance: SULFAMETHOXAZOLE\TRIMETHOPRIM
     Indication: RESPIRATORY TRACT INFECTION
     Dosage: 6.4 GRAM, ONCE A DAY
     Route: 042
     Dates: start: 20190706, end: 20190709
  2. AMBISOME [Suspect]
     Active Substance: AMPHOTERICIN B
     Indication: RESPIRATORY TRACT INFECTION
     Dosage: 250 MILLIGRAM, ONCE A DAY
     Route: 042
     Dates: start: 20190706, end: 20190709
  3. NOXAFIL [Suspect]
     Active Substance: POSACONAZOLE
     Indication: RESPIRATORY TRACT INFECTION
     Dosage: 1 DOSAGE FORM, ONCE A DAY
     Route: 042
     Dates: start: 20190707
  4. ROVAMYCINE [Suspect]
     Active Substance: SPIRAMYCIN
     Indication: RESPIRATORY TRACT INFECTION
     Dosage: 9 MEGA-INTERNATIONAL UNIT, ONCE A DAY
     Route: 042
     Dates: start: 20190707
  5. ESOMEPRAZOLE. [Suspect]
     Active Substance: ESOMEPRAZOLE MAGNESIUM
     Indication: GASTROOESOPHAGEAL REFLUX DISEASE
     Dosage: 40 MILLIGRAM, ONCE A DAY
     Route: 048
     Dates: start: 20190706
  6. CEFOTAXIME [Suspect]
     Active Substance: CEFOTAXIME SODIUM
     Indication: RESPIRATORY TRACT INFECTION
     Dosage: 6 GRAM, ONCE A DAY
     Route: 042
     Dates: start: 20190707

REACTIONS (1)
  - Acute kidney injury [Not Recovered/Not Resolved]

NARRATIVE: CASE EVENT DATE: 20190708
